FAERS Safety Report 16673577 (Version 2)
Quarter: 2019Q3

REPORT INFORMATION
  Report Type: Spontaneous
  Country: RU (occurrence: RU)
  Receive Date: 20190806
  Receipt Date: 20190903
  Transmission Date: 20191004
  Serious: Yes (Other)
  Sender: FDA-Public Use
  Company Number: RU-TEVA-2019-RU-1087356

PATIENT
  Age: 14 Year
  Sex: Female

DRUGS (8)
  1. VALACYCLOVIR [Concomitant]
     Active Substance: VALACYCLOVIR HYDROCHLORIDE
  2. MICAFUNGIN. [Concomitant]
     Active Substance: MICAFUNGIN SODIUM
  3. METHOTREXATE. [Suspect]
     Active Substance: METHOTREXATE
     Indication: DRUG THERAPY
     Route: 037
     Dates: start: 20160927, end: 20170609
  4. DEXAMETHASONE. [Concomitant]
     Active Substance: DEXAMETHASONE
     Route: 039
  5. AMIKACIN. [Concomitant]
     Active Substance: AMIKACIN
  6. CYTARABINE. [Concomitant]
     Active Substance: CYTARABINE
     Route: 039
  7. MEROPENEM. [Concomitant]
     Active Substance: MEROPENEM
  8. VANCOMYCIN [Concomitant]
     Active Substance: VANCOMYCIN

REACTIONS (1)
  - Toxic encephalopathy [Unknown]
